FAERS Safety Report 21261083 (Version 1)
Quarter: 2022Q3

REPORT INFORMATION
  Report Type: Report from Study
  Country: US (occurrence: US)
  Receive Date: 20220826
  Receipt Date: 20220826
  Transmission Date: 20221027
  Serious: Yes (Life-Threatening, Hospitalization, Other)
  Sender: FDA-Public Use
  Company Number: US-SEATTLE GENETICS-2022SGN06960

PATIENT
  Age: 43 Year
  Sex: Female

DRUGS (2)
  1. TUCATINIB [Suspect]
     Active Substance: TUCATINIB
     Indication: Breast cancer female
     Route: 065
  2. DEXAMETHASONE [Suspect]
     Active Substance: DEXAMETHASONE
     Indication: Breast cancer female
     Dosage: 4 MG, BID
     Route: 065

REACTIONS (4)
  - Adverse drug reaction [Unknown]
  - Seizure [Unknown]
  - Bedridden [Unknown]
  - Walking aid user [Unknown]

NARRATIVE: CASE EVENT DATE: 20220719
